FAERS Safety Report 10169159 (Version 1)
Quarter: 2014Q2

REPORT INFORMATION
  Report Type: Spontaneous
  Country: US (occurrence: US)
  Receive Date: 20140513
  Receipt Date: 20140513
  Transmission Date: 20141212
  Serious: No
  Sender: FDA-Public Use
  Company Number: US-TARO-2014P1002544

PATIENT
  Age: 4 Year
  Sex: Male

DRUGS (2)
  1. CETIRIZINE HCL CHILDREN ORAL SOLUTION ALLERGY 1MG/ML (SUGARFREE GRAPE) [Suspect]
     Indication: MULTIPLE ALLERGIES
     Route: 048
     Dates: start: 2013, end: 201403
  2. CETIRIZINE HCL CHILDREN ORAL SOLUTION ALLERGY 1MG/ML (SUGARFREE GRAPE) [Suspect]
     Indication: URTICARIA
     Route: 048
     Dates: start: 2013, end: 201403

REACTIONS (2)
  - Urticaria [Recovered/Resolved]
  - Coeliac disease [Not Recovered/Not Resolved]
